FAERS Safety Report 9678286 (Version 1)
Quarter: 2013Q4

REPORT INFORMATION
  Report Type: Spontaneous
  Country: GB (occurrence: GB)
  Receive Date: 20131108
  Receipt Date: 20131108
  Transmission Date: 20140711
  Serious: Yes (Other)
  Sender: FDA-Public Use
  Company Number: GB-ACTAVIS-2013-20176

PATIENT
  Sex: Female

DRUGS (1)
  1. LYNLOR [Suspect]
     Indication: PAIN
     Dosage: 20 MG, UNK
     Route: 048

REACTIONS (2)
  - Drug effect decreased [Unknown]
  - Unevaluable event [Unknown]
